FAERS Safety Report 4501421-9 (Version None)
Quarter: 2004Q4

REPORT INFORMATION
  Report Type: 
  Country: None (occurrence: None)
  Receive Date: 20041110
  Receipt Date: 20041026
  Transmission Date: 20050328
  Serious: Yes (Hospitalization)
  Sender: FDA-Public Use
  Company Number: US014249

PATIENT
  Age: 61 Year
  Sex: Female

DRUGS (1)
  1. FENTANYL [Suspect]

REACTIONS (2)
  - POST PROCEDURAL NAUSEA [None]
  - POSTOPERATIVE DIZZINESS [None]
